FAERS Safety Report 11271556 (Version 5)
Quarter: 2015Q4

REPORT INFORMATION
  Report Type: Spontaneous
  Country: TW (occurrence: TW)
  Receive Date: 20150714
  Receipt Date: 20151113
  Transmission Date: 20160304
  Serious: Yes (Other)
  Sender: FDA-Public Use
  Company Number: TW-AMGEN-TWNSP2015035097

PATIENT
  Age: 48 Year
  Sex: Female

DRUGS (1)
  1. ENBREL [Suspect]
     Active Substance: ETANERCEPT
     Indication: RHEUMATOID ARTHRITIS
     Dosage: 25 MG, TWICE WEEKLY
     Route: 058
     Dates: start: 20100831

REACTIONS (8)
  - Influenza [Recovered/Resolved]
  - Lung infection [Not Recovered/Not Resolved]
  - Tuberculosis [Not Recovered/Not Resolved]
  - Cough [Recovered/Resolved]
  - Pharyngitis [Not Recovered/Not Resolved]
  - Rhinorrhoea [Recovered/Resolved]
  - Sputum discoloured [Not Recovered/Not Resolved]
  - Pyrexia [Recovered/Resolved]

NARRATIVE: CASE EVENT DATE: 201504
